FAERS Safety Report 17825523 (Version 2)
Quarter: 2020Q2

REPORT INFORMATION
  Report Type: Spontaneous
  Country: US (occurrence: US)
  Receive Date: 20200526
  Receipt Date: 20200626
  Transmission Date: 20200714
  Serious: Yes (Death)
  Sender: FDA-Public Use
  Company Number: US-GW PHARMA-202005USGW01777

PATIENT

DRUGS (1)
  1. EPIDIOLEX [Suspect]
     Active Substance: CANNABIDIOL
     Indication: NEUROMYOPATHY
     Dosage: 16.5 MG/KG/DAY, 120 MILLIGRAM, BID
     Route: 048
     Dates: start: 201910, end: 20200216

REACTIONS (2)
  - Product use in unapproved indication [Unknown]
  - Septic shock [Fatal]

NARRATIVE: CASE EVENT DATE: 201910
